FAERS Safety Report 7261667-6 (Version None)
Quarter: 2011Q1

REPORT INFORMATION
  Report Type: 
  Country: None (occurrence: None)
  Receive Date: 20110130
  Receipt Date: 20101102
  Transmission Date: 20110831
  Serious: No
  Sender: FDA-Public Use
  Company Number: US-ABBOTT-10P-163-0682944-00

PATIENT
  Age: 54 Year
  Sex: Female

DRUGS (6)
  1. HUMIRA [Suspect]
     Indication: RHEUMATOID ARTHRITIS
     Dates: start: 20100801
  2. PREMARIN [Concomitant]
     Indication: HORMONE REPLACEMENT THERAPY
  3. ELAVIL [Concomitant]
     Indication: INSOMNIA
  4. MULTIVITAMIN [Concomitant]
     Indication: PRODUCT USED FOR UNKNOWN INDICATION
  5. TOPROL-XL [Concomitant]
     Indication: TREMOR
  6. PROZAC [Concomitant]
     Indication: ANXIETY

REACTIONS (8)
  - PYREXIA [None]
  - PRODUCTIVE COUGH [None]
  - HEADACHE [None]
  - RHINORRHOEA [None]
  - EAR CONGESTION [None]
  - BRONCHITIS [None]
  - UPPER RESPIRATORY TRACT INFECTION [None]
  - PAIN [None]
